FAERS Safety Report 17900998 (Version 1)
Quarter: 2020Q2

REPORT INFORMATION
  Report Type: Spontaneous
  Country: US (occurrence: US)
  Receive Date: 20200615
  Receipt Date: 20200615
  Transmission Date: 20200714
  Serious: Yes (Hospitalization)
  Sender: FDA-Public Use
  Company Number: None

PATIENT
  Age: 91 Year
  Sex: Male
  Weight: 74 kg

DRUGS (2)
  1. ASPIRIN (ASPIRIN 81MG TAB, EC) [Suspect]
     Active Substance: ASPIRIN
     Route: 048
     Dates: start: 20200121, end: 20200122
  2. APIXABAN (APIXABAN 2.5MG TAB) [Suspect]
     Active Substance: APIXABAN
     Indication: ATRIAL FIBRILLATION
     Route: 048
     Dates: start: 20180814

REACTIONS (6)
  - Cerebrovascular accident [None]
  - Lower gastrointestinal haemorrhage [None]
  - Haemoglobin decreased [None]
  - Clostridium test positive [None]
  - Diverticulitis intestinal haemorrhagic [None]
  - Haematochezia [None]

NARRATIVE: CASE EVENT DATE: 20200122
